FAERS Safety Report 25706373 (Version 1)
Quarter: 2025Q3

REPORT INFORMATION
  Report Type: Spontaneous
  Country: US (occurrence: None)
  Receive Date: 20250820
  Receipt Date: 20250820
  Transmission Date: 20251021
  Serious: Yes (Life-Threatening, Hospitalization)
  Sender: FDA-CTU
  Company Number: None

PATIENT
  Age: 43 Year
  Sex: Male
  Weight: 153.9 kg

DRUGS (1)
  1. METHYLCOBALAMIN\SEMAGLUTIDE [Suspect]
     Active Substance: METHYLCOBALAMIN\SEMAGLUTIDE
     Indication: Weight decreased
     Dosage: OTHER QUANTITY : 3 INJECTION(S);?FREQUENCY : 3 TIMES A DAY;?
     Route: 030
     Dates: start: 20250708, end: 20250801

REACTIONS (3)
  - Product dispensing error [None]
  - Product administration error [None]
  - Incorrect dose administered [None]

NARRATIVE: CASE EVENT DATE: 20250716
